FAERS Safety Report 21911234 (Version 12)
Quarter: 2025Q1

REPORT INFORMATION
  Report Type: Spontaneous
  Country: US (occurrence: US)
  Receive Date: 20230125
  Receipt Date: 20250318
  Transmission Date: 20250408
  Serious: Yes (Hospitalization, Other)
  Sender: PFIZER
  Company Number: US-PFIZER INC-202300035965

PATIENT
  Age: 84 Year
  Sex: Male
  Weight: 108.86 kg

DRUGS (5)
  1. BOSULIF [Suspect]
     Active Substance: BOSUTINIB MONOHYDRATE
     Indication: Chronic myeloid leukaemia
     Dosage: 200 MG (2 TABLETS OF 100 MG), DAILY
     Route: 048
  2. BOSULIF [Suspect]
     Active Substance: BOSUTINIB MONOHYDRATE
     Dosage: 200 MG (2 TABLETS OF 100 MG), DAILY
     Route: 048
  3. BOSULIF [Suspect]
     Active Substance: BOSUTINIB MONOHYDRATE
     Dosage: 200 MG (2 TABLETS OF 100 MG), 1X/DAY
     Route: 048
  4. BOSULIF [Suspect]
     Active Substance: BOSUTINIB MONOHYDRATE
  5. BOSULIF [Suspect]
     Active Substance: BOSUTINIB MONOHYDRATE
     Dosage: 200 MG (2 TABLETS OF 100 MG), 1X/DAY
     Route: 048

REACTIONS (4)
  - Pneumonia [Not Recovered/Not Resolved]
  - Rash macular [Not Recovered/Not Resolved]
  - Skin exfoliation [Unknown]
  - Illness [Unknown]

NARRATIVE: CASE EVENT DATE: 20220101
